FAERS Safety Report 7701333-3 (Version None)
Quarter: 2011Q3

REPORT INFORMATION
  Report Type: 
  Country: None (occurrence: None)
  Receive Date: 20110822
  Receipt Date: 20110811
  Transmission Date: 20111222
  Serious: Yes (Death, Hospitalization, Other)
  Sender: FDA-Public Use
  Company Number: JP-ELI_LILLY_AND_COMPANY-JP201108004683

PATIENT
  Sex: Female

DRUGS (10)
  1. NAPROXEN [Concomitant]
     Indication: TUMOUR ASSOCIATED FEVER
     Dosage: 300 MG, TID
     Route: 048
     Dates: start: 20110408
  2. BARACLUDE [Concomitant]
     Indication: HEPATIC CIRRHOSIS
     Dosage: 05 MG, QD
     Route: 048
     Dates: start: 20101119
  3. CARBOPLATIN [Concomitant]
     Indication: BREAST CANCER STAGE III
     Dosage: 300 MG, UNK
     Route: 042
     Dates: start: 20110408, end: 20110519
  4. AMINOLEBAN [Concomitant]
     Route: 048
  5. GEMZAR [Suspect]
     Dosage: 1000 MG, UNK
     Route: 042
     Dates: start: 20110428, end: 20110519
  6. AMINOLEBAN EN [Concomitant]
     Dosage: 50 G, QD
     Route: 048
  7. PROTECADIN [Concomitant]
     Dosage: 20 MG, BID
     Route: 048
  8. GEMZAR [Suspect]
     Indication: BREAST CANCER STAGE III
     Dosage: 1200 MG, UNK
     Route: 042
     Dates: start: 20110408, end: 20110408
  9. MAGMITT [Concomitant]
     Dosage: 150 MG, TID
     Route: 048
  10. PURSENNID                          /00571902/ [Concomitant]
     Indication: CONSTIPATION
     Dosage: 24 MG, PRN
     Route: 048

REACTIONS (6)
  - HOSPITALISATION [None]
  - DEATH [None]
  - NEUTROPHIL COUNT DECREASED [None]
  - ANAEMIA [None]
  - PLEURAL EFFUSION [None]
  - PLATELET COUNT DECREASED [None]
